FAERS Safety Report 8137908-X (Version None)
Quarter: 2012Q1

REPORT INFORMATION
  Report Type: 
  Country: None (occurrence: None)
  Receive Date: 20120103
  Receipt Date: 20110906
  Transmission Date: 20120608
  Serious: No
  Sender: FDA-Public Use
  Company Number: AE-2011-001360

PATIENT
  Age: 39 Year
  Sex: Female
  Weight: 67.1324 kg

DRUGS (5)
  1. SPIRONOLACTONE [Concomitant]
  2. RIBAVIRIN [Concomitant]
  3. INCIVEK [Suspect]
     Dosage: 2250 MG (750 MG, 1 IN 8 HR), ORAL
     Route: 048
     Dates: start: 20110813, end: 20110902
  4. PEGASYS [Concomitant]
  5. LACTULOSE [Concomitant]

REACTIONS (5)
  - DYSPNOEA [None]
  - ANAEMIA [None]
  - HEART RATE INCREASED [None]
  - DEPRESSION [None]
  - PRURITUS [None]
